FAERS Safety Report 6029322-8 (Version None)
Quarter: 2009Q1

REPORT INFORMATION
  Report Type: 
  Country: None (occurrence: None)
  Receive Date: 20090102
  Receipt Date: 20081216
  Transmission Date: 20090719
  Serious: Yes (Hospitalization)
  Sender: FDA-Public Use
  Company Number: 2008PL000295

PATIENT
  Age: 68 Year
  Sex: Male

DRUGS (5)
  1. IMURAN [Suspect]
     Indication: RHEUMATOID ARTHRITIS
  2. LEFLUNOMIDE [Suspect]
     Indication: RHEUMATOID ARTHRITIS
  3. CYTOSIDE ARABINOSIDE [Concomitant]
  4. PHENYTOIN SODIUM [Concomitant]
  5. LEVETIRACETAM [Concomitant]

REACTIONS (5)
  - APHASIA [None]
  - CEREBROVASCULAR ACCIDENT [None]
  - HEMIPARESIS [None]
  - PROGRESSIVE MULTIFOCAL LEUKOENCEPHALOPATHY [None]
  - STATUS EPILEPTICUS [None]
